FAERS Safety Report 11490281 (Version 3)
Quarter: 2015Q4

REPORT INFORMATION
  Report Type: Report from Study
  Country: DE (occurrence: DE)
  Receive Date: 20150910
  Receipt Date: 20151013
  Transmission Date: 20160304
  Serious: Yes (Hospitalization, Other)
  Sender: FDA-Public Use
  Company Number: DE-ABBVIE-15P-062-1458417-00

PATIENT
  Age: 56 Year
  Sex: Male

DRUGS (7)
  1. METRONIDAZOLE. [Concomitant]
     Active Substance: METRONIDAZOLE
     Indication: PRODUCT USED FOR UNKNOWN INDICATION
     Route: 042
  2. MADOPAR [Concomitant]
     Active Substance: BENSERAZIDE HYDROCHLORIDE\LEVODOPA
     Indication: PRODUCT USED FOR UNKNOWN INDICATION
     Dosage: 3 TIMES
     Route: 065
  3. DUODOPA [Suspect]
     Active Substance: CARBIDOPA\LEVODOPA
     Indication: PARKINSON^S DISEASE
     Dosage: 3.4 ML/H
     Route: 050
     Dates: start: 20150828
  4. CEFUROXIN [Concomitant]
     Active Substance: CEFUROXIME
     Indication: PRODUCT USED FOR UNKNOWN INDICATION
     Route: 042
  5. DUODOPA [Suspect]
     Active Substance: CARBIDOPA\LEVODOPA
     Dosage: 3.2 ML/H
     Route: 050
     Dates: start: 20150828
  6. CEFTRIAXON [Concomitant]
     Active Substance: CEFTRIAXONE
     Indication: ANTIBIOTIC PROPHYLAXIS
     Dosage: ONCE AT THE DAY OF PEG PLACEMENT
     Route: 065
  7. FRAXIPARIN [Concomitant]
     Active Substance: NADROPARIN CALCIUM
     Indication: THROMBOSIS PROPHYLAXIS
     Route: 065

REACTIONS (14)
  - Abdominal pain upper [Recovering/Resolving]
  - Stoma site erythema [Unknown]
  - Tendon injury [Not Recovered/Not Resolved]
  - Device dislocation [Unknown]
  - Inflammatory marker increased [Not Recovered/Not Resolved]
  - Stoma site discharge [Unknown]
  - Infection [Recovering/Resolving]
  - Peritonitis [Not Recovered/Not Resolved]
  - Pleural effusion [Not Recovered/Not Resolved]
  - Drug effect variable [Recovered/Resolved]
  - Stoma site abscess [Unknown]
  - Stoma site odour [Unknown]
  - Stoma site discomfort [Unknown]
  - Fall [Not Recovered/Not Resolved]

NARRATIVE: CASE EVENT DATE: 20150901
